FAERS Safety Report 7929616-2 (Version None)
Quarter: 2011Q4

REPORT INFORMATION
  Report Type: 
  Country: None (occurrence: None)
  Receive Date: 20111108
  Receipt Date: 20110307
  Transmission Date: 20120403
  Serious: Yes (Other)
  Sender: FDA-Public Use
  Company Number: PHHY2011US19338

PATIENT

DRUGS (1)
  1. ZOMETA [Suspect]

REACTIONS (11)
  - FEELING HOT [None]
  - PYREXIA [None]
  - BONE PAIN [None]
  - ASTHENIA [None]
  - CRYING [None]
  - DYSPNOEA [None]
  - DECREASED APPETITE [None]
  - PAIN [None]
  - HYPERHIDROSIS [None]
  - CHILLS [None]
  - HEADACHE [None]
